FAERS Safety Report 11603506 (Version 1)
Quarter: 2015Q4

REPORT INFORMATION
  Report Type: Not Available
  Country: PL (occurrence: PL)
  Receive Date: 20151007
  Receipt Date: 20151007
  Transmission Date: 20160304
  Serious: Yes (Other)
  Sender: FDA-Public Use
  Company Number: PL-BEH-2015054474

PATIENT
  Age: 38 Year
  Sex: Female
  Weight: 92 kg

DRUGS (1)
  1. SANDOGLOBULIN [Suspect]
     Active Substance: HUMAN IMMUNOGLOBULIN G
     Indication: RENAL TRANSPLANT
     Dosage: EARLIER THE PATIENT WAS RECEIVING THE DRUG IN DIVIDED DOSES - 5 X 6G EVERY 2 DAYS
     Route: 042
     Dates: start: 20150521, end: 20150521

REACTIONS (4)
  - Dyspnoea [Recovered/Resolved]
  - Pruritus [Recovered/Resolved]
  - Fluid overload [Recovered/Resolved]
  - Malaise [Recovered/Resolved]

NARRATIVE: CASE EVENT DATE: 20150521
